FAERS Safety Report 5404301-X (Version None)
Quarter: 2007Q3

REPORT INFORMATION
  Report Type: 
  Country: None (occurrence: None)
  Receive Date: 20070802
  Receipt Date: 20070723
  Transmission Date: 20080115
  Serious: Yes (Death)
  Sender: FDA-Public Use
  Company Number: US-BAXTER-2007BH006528

PATIENT
  Age: 65 Year
  Sex: Female

DRUGS (1)
  1. DIANEAL [Suspect]
     Indication: DIABETIC END STAGE RENAL DISEASE
     Route: 033
     Dates: start: 20070401, end: 20070702

REACTIONS (1)
  - SEPSIS [None]
